FAERS Safety Report 4535171-X (Version None)
Quarter: 2004Q4

REPORT INFORMATION
  Report Type: 
  Country: None (occurrence: None)
  Receive Date: 20041222
  Receipt Date: 20040526
  Transmission Date: 20050328
  Serious: No
  Sender: FDA-Public Use
  Company Number: US-BRISTOL-MYERS SQUIBB COMPANY-12597134

PATIENT

DRUGS (3)
  1. DOVONEX [Suspect]
     Indication: PSORIASIS
     Dosage: USED INTERMITTENTLY FOR OVER ONE YEAR.
  2. ULTRAVATE [Concomitant]
  3. BETAMETHASONE DIPROPIONATE [Concomitant]

REACTIONS (1)
  - TINNITUS [None]
